FAERS Safety Report 12684627 (Version 2)
Quarter: 2016Q3

REPORT INFORMATION
  Report Type: Spontaneous
  Country: US (occurrence: US)
  Receive Date: 20160825
  Receipt Date: 20160825
  Transmission Date: 20161109
  Serious: Yes (Hospitalization)
  Sender: FDA-Public Use
  Company Number: US-GLAXOSMITHKLINE-US2016GSK123386

PATIENT
  Age: 53 Year
  Sex: Female
  Weight: 65.76 kg

DRUGS (11)
  1. AMLODIPINE [Concomitant]
     Active Substance: AMLODIPINE BESYLATE
     Dosage: 5 MG, QD
  2. PROGESTERONE. [Concomitant]
     Active Substance: PROGESTERONE
     Dosage: UNK
     Dates: start: 20160728
  3. PREMARIN [Concomitant]
     Active Substance: ESTROGENS, CONJUGATED
     Dosage: 0.9 MG, QD
  4. CLONAZEPAM. [Suspect]
     Active Substance: CLONAZEPAM
     Dosage: 0.75 MG, BID
  5. NICOTINE UNKNOWN BRAND [Suspect]
     Active Substance: NICOTINE
     Indication: PRODUCT USED FOR UNKNOWN INDICATION
     Dosage: 2 MG, TID
     Route: 002
  6. SERTRALINE [Concomitant]
     Active Substance: SERTRALINE HYDROCHLORIDE
     Dosage: 200 MG, QD
  7. BUPROPION HYDROCHLORIDE. [Suspect]
     Active Substance: BUPROPION HYDROCHLORIDE
     Indication: FATIGUE
     Dosage: 100 MG, QD
     Route: 048
     Dates: start: 20160713, end: 20160729
  8. PANTOPRAZOLE [Concomitant]
     Active Substance: PANTOPRAZOLE SODIUM
     Dosage: 30 MG, QD
  9. CLONAZEPAM. [Suspect]
     Active Substance: CLONAZEPAM
     Indication: PRODUCT USED FOR UNKNOWN INDICATION
     Dosage: 0.25 MG, BID
     Dates: end: 20160714
  10. PROGESTERONE. [Concomitant]
     Active Substance: PROGESTERONE
     Dosage: 100 MG, QD
     Dates: end: 20160727
  11. PRAVASTATIN. [Concomitant]
     Active Substance: PRAVASTATIN
     Dosage: 10 MG, QD

REACTIONS (11)
  - Migraine [Unknown]
  - Insomnia [Recovering/Resolving]
  - Drug dose omission [Unknown]
  - Panic attack [Recovered/Resolved]
  - Muscle tightness [Unknown]
  - Circumstance or information capable of leading to medication error [Unknown]
  - Hypertension [Unknown]
  - Psychomotor hyperactivity [Unknown]
  - Drug withdrawal syndrome [Recovered/Resolved]
  - Labelled drug-drug interaction medication error [Unknown]
  - Therapy cessation [Unknown]

NARRATIVE: CASE EVENT DATE: 201607
